FAERS Safety Report 4324975-4 (Version None)
Quarter: 2004Q1

REPORT INFORMATION
  Report Type: 
  Country: None (occurrence: None)
  Receive Date: 20040326
  Receipt Date: 20031205
  Transmission Date: 20041129
  Serious: Yes (Death, Hospitalization)
  Sender: FDA-Public Use
  Company Number: JP-BRISTOL-MYERS SQUIBB COMPANY-12451621

PATIENT
  Age: 75 Year
  Sex: Male

DRUGS (6)
  1. VEPESID [Suspect]
     Indication: PROSTATE CANCER
     Dosage: THERAPY DATES: 27-JUN-2003 TO 17-JUL-2003
     Route: 048
     Dates: start: 20030717, end: 20030717
  2. ESTRACYT [Concomitant]
     Route: 048
     Dates: start: 20030527, end: 20030721
  3. ASPIRIN [Concomitant]
     Route: 048
     Dates: start: 20030527, end: 20030721
  4. CALSLOT [Concomitant]
     Route: 048
     Dates: start: 20030304, end: 20030721
  5. MAGNESIUM OXIDE [Concomitant]
     Route: 048
     Dates: start: 20030426, end: 20030721
  6. SENNOSIDE [Concomitant]
     Route: 048
     Dates: start: 20030309, end: 20030721

REACTIONS (2)
  - LEUKOPENIA [None]
  - PNEUMONIA [None]
